FAERS Safety Report 5768739-3 (Version None)
Quarter: 2008Q2

REPORT INFORMATION
  Report Type: 
  Country: None (occurrence: None)
  Receive Date: 20080612
  Receipt Date: 20080519
  Transmission Date: 20081010
  Serious: No
  Sender: FDA-Public Use
  Company Number: US-BOEHRINGER INGELHEIM GMBH, GERMANY-2008-BP-07745BP

PATIENT
  Sex: Female

DRUGS (6)
  1. CATAPRES-TTS-1 [Suspect]
     Indication: HYPERTENSION
     Route: 061
  2. DIOVAN [Concomitant]
  3. NORVASC [Concomitant]
  4. PEPCID [Concomitant]
  5. ATENOLOL [Concomitant]
  6. VESICARE [Concomitant]

REACTIONS (2)
  - PRURITUS [None]
  - RASH [None]
